FAERS Safety Report 8434667-8 (Version None)
Quarter: 2012Q2

REPORT INFORMATION
  Report Type: 
  Country: None (occurrence: None)
  Receive Date: 20120323
  Receipt Date: 20110711
  Transmission Date: 20120825
  Serious: Yes (Other)
  Sender: FDA-Public Use
  Company Number: 163-21880-11071104

PATIENT
  Age: 75 Year
  Sex: Female

DRUGS (7)
  1. TRAZODONE HCL [Concomitant]
  2. LISINOPRIL [Concomitant]
  3. REVLIMID [Suspect]
     Indication: MULTIPLE MYELOMA
     Dosage: 10 MG, DAILY X 21D/28D, PO
     Route: 048
     Dates: start: 20110617, end: 20110707
  4. ATENOLOL [Concomitant]
  5. ASPIRIN [Concomitant]
  6. CLOPIDEGREL [Concomitant]
  7. SIMVASTATIN [Concomitant]

REACTIONS (2)
  - DIARRHOEA [None]
  - URINARY TRACT INFECTION [None]
